FAERS Safety Report 22133002 (Version 1)
Quarter: 2023Q1

REPORT INFORMATION
  Report Type: Report from Study
  Country: US (occurrence: US)
  Receive Date: 20230324
  Receipt Date: 20230324
  Transmission Date: 20230417
  Serious: No
  Sender: FDA-Public Use
  Company Number: US-ACADIA PHARMACEUTICALS INC.-ACA-2023-PIM-000809

PATIENT
  Age: 85 Year
  Sex: Female

DRUGS (17)
  1. NUPLAZID [Suspect]
     Active Substance: PIMAVANSERIN TARTRATE
     Indication: Parkinson^s disease psychosis
     Dosage: 34 MILLIGRAM, QD
     Route: 048
     Dates: start: 202302
  2. NUPLAZID [Suspect]
     Active Substance: PIMAVANSERIN TARTRATE
     Indication: Hallucination
  3. NUPLAZID [Suspect]
     Active Substance: PIMAVANSERIN TARTRATE
     Indication: Delusion
  4. NORVASC [Concomitant]
     Active Substance: AMLODIPINE BESYLATE
  5. CLOBETASOL PROPIONATE [Concomitant]
     Active Substance: CLOBETASOL PROPIONATE
     Dosage: 0.05%
  6. CLONAZEPAM [Concomitant]
     Active Substance: CLONAZEPAM
  7. CYCLOBENZAPRINE HYDROCHLORIDE [Concomitant]
     Active Substance: CYCLOBENZAPRINE HYDROCHLORIDE
  8. ESTRING [Concomitant]
     Active Substance: ESTRADIOL
  9. ISOSORBIDE DINITRATE [Concomitant]
     Active Substance: ISOSORBIDE DINITRATE
  10. MEMANTINE [Concomitant]
     Active Substance: MEMANTINE
  11. METOPROLOL [Concomitant]
     Active Substance: METOPROLOL
  12. NITROGLYCERIN [Concomitant]
     Active Substance: NITROGLYCERIN
  13. QUETIAPINE [Concomitant]
     Active Substance: QUETIAPINE
  14. DISODIUM FUMARATE [Concomitant]
     Active Substance: DISODIUM FUMARATE
  15. ROPINIROLE HYDROCHLORIDE [Concomitant]
     Active Substance: ROPINIROLE HYDROCHLORIDE
  16. ROSUVASTATIN [Concomitant]
     Active Substance: ROSUVASTATIN
  17. SYNTHROID [Concomitant]
     Active Substance: LEVOTHYROXINE SODIUM

REACTIONS (4)
  - Oxygen saturation decreased [Unknown]
  - Fall [Unknown]
  - Somnolence [Not Recovered/Not Resolved]
  - Drug ineffective [Not Recovered/Not Resolved]

NARRATIVE: CASE EVENT DATE: 20230301
